FAERS Safety Report 5012782-9 (Version None)
Quarter: 2006Q2

REPORT INFORMATION
  Report Type: 
  Country: None (occurrence: None)
  Receive Date: 20060530
  Receipt Date: 20060228
  Transmission Date: 20061013
  Serious: Yes (Other)
  Sender: FDA-Public Use
  Company Number: US-BRISTOL-MYERS SQUIBB COMPANY-13298716

PATIENT
  Age: 41 Year
  Sex: Male
  Weight: 87 kg

DRUGS (9)
  1. ERBITUX [Suspect]
     Indication: COLON CANCER
     Dosage: 1ST DOSE. 2ND DOSE 22-FEB-06 (250 MG/M2).
     Route: 042
     Dates: start: 20060213, end: 20060213
  2. CAMPTOSAR [Concomitant]
  3. DEXAMETHASONE TAB [Concomitant]
     Indication: PREMEDICATION
     Route: 042
     Dates: start: 20060213, end: 20060213
  4. ZOFRAN [Concomitant]
     Indication: PREMEDICATION
     Route: 042
     Dates: start: 20060213, end: 20060213
  5. BENADRYL [Concomitant]
     Indication: PREMEDICATION
     Route: 042
     Dates: start: 20060213, end: 20060213
  6. ZANTAC [Concomitant]
     Indication: PREMEDICATION
     Route: 042
     Dates: start: 20060213, end: 20060213
  7. OMEPRAZOLE [Concomitant]
  8. TRAZODONE HCL [Concomitant]
  9. OXYCODONE [Concomitant]

REACTIONS (1)
  - ACNE [None]
